FAERS Safety Report 14156671 (Version 2)
Quarter: 2017Q4

REPORT INFORMATION
  Report Type: Spontaneous
  Country: JP (occurrence: JP)
  Receive Date: 20171103
  Receipt Date: 20171115
  Transmission Date: 20180321
  Serious: Yes (Death, Other)
  Sender: FDA-Public Use
  Company Number: JP-009507513-1710JPN003561J

PATIENT

DRUGS (1)
  1. KEYTRUDA [Suspect]
     Active Substance: PEMBROLIZUMAB
     Indication: SQUAMOUS CELL CARCINOMA OF LUNG
     Dosage: 200 MG, UNK
     Route: 041
     Dates: start: 20170905, end: 20171017

REACTIONS (4)
  - Malignant neoplasm progression [Fatal]
  - Depressed level of consciousness [Unknown]
  - Seizure [Unknown]
  - Sputum retention [Unknown]

NARRATIVE: CASE EVENT DATE: 2017
